FAERS Safety Report 11789853 (Version 2)
Quarter: 2016Q1

REPORT INFORMATION
  Report Type: Spontaneous
  Country: US (occurrence: US)
  Receive Date: 20151201
  Receipt Date: 20160323
  Transmission Date: 20160525
  Serious: No
  Sender: FDA-Public Use
  Company Number: US-BAYER-2015-459638

PATIENT
  Age: 53 Year
  Sex: Female

DRUGS (11)
  1. AMBRISENTAN [Suspect]
     Active Substance: AMBRISENTAN
     Indication: PRODUCT USED FOR UNKNOWN INDICATION
     Dosage: 5 MG, QD
     Route: 065
     Dates: start: 20150825
  2. AMBRISENTAN [Suspect]
     Active Substance: AMBRISENTAN
     Indication: PRODUCT USED FOR UNKNOWN INDICATION
     Dosage: UNK
     Route: 065
  3. ADEMPAS [Suspect]
     Active Substance: RIOCIGUAT
     Indication: PRODUCT USED FOR UNKNOWN INDICATION
     Dosage: UNK
     Route: 065
  4. AMBRISENTAN [Suspect]
     Active Substance: AMBRISENTAN
     Indication: PRODUCT USED FOR UNKNOWN INDICATION
     Dosage: 5 MG, QD
     Route: 065
     Dates: start: 20150825
  5. TYVASO [Concomitant]
     Active Substance: TREPROSTINIL
     Indication: HYPERTENSION
     Dosage: 8 DF, UNK
     Route: 055
  6. AMBRISENTAN [Suspect]
     Active Substance: AMBRISENTAN
     Indication: PRODUCT USED FOR UNKNOWN INDICATION
     Dosage: 10 MG, QD
     Route: 065
     Dates: start: 20150825
  7. AMBRISENTAN [Suspect]
     Active Substance: AMBRISENTAN
     Indication: PRODUCT USED FOR UNKNOWN INDICATION
     Dosage: 10 MG, UNK
     Route: 065
  8. TYVASO [Concomitant]
     Active Substance: TREPROSTINIL
     Indication: HYPERTENSION
     Dosage: UNK
     Route: 055
  9. TYVASO [Concomitant]
     Active Substance: TREPROSTINIL
     Indication: HYPERTENSION
     Dosage: UNK
     Route: 055
  10. TYVASO [Concomitant]
     Active Substance: TREPROSTINIL
     Indication: HYPERTENSION
     Dosage: UNK, QID
     Route: 055
     Dates: start: 20150901
  11. TYVASO [Concomitant]
     Active Substance: TREPROSTINIL
     Indication: HYPERTENSION
     Dosage: UNK
     Route: 055

REACTIONS (2)
  - Dizziness [None]
  - Blood pressure abnormal [None]
